FAERS Safety Report 24269209 (Version 2)
Quarter: 2024Q3

REPORT INFORMATION
  Report Type: Report from Study
  Country: CA (occurrence: CA)
  Receive Date: 20240830
  Receipt Date: 20240904
  Transmission Date: 20241016
  Serious: Yes (Hospitalization)
  Sender: ABBVIE
  Company Number: CA-ABBVIE-5897762

PATIENT
  Age: 53 Year
  Sex: Female

DRUGS (1)
  1. SKYRIZI [Suspect]
     Active Substance: RISANKIZUMAB-RZAA
     Indication: Crohn^s disease
     Dosage: FREQUENCY TEXT: WEEK 0, 4
     Route: 042
     Dates: start: 20240727

REACTIONS (12)
  - Peripheral swelling [Unknown]
  - Blood potassium decreased [Unknown]
  - Blood magnesium decreased [Unknown]
  - Hypotension [Unknown]
  - Weight increased [Unknown]
  - Eye pain [Unknown]
  - Intra-abdominal fluid collection [Unknown]
  - Oedema peripheral [Unknown]
  - Headache [Unknown]
  - Fluid retention [Unknown]
  - Abdominal rigidity [Unknown]
  - Gait disturbance [Unknown]

NARRATIVE: CASE EVENT DATE: 20240101
